FAERS Safety Report 17228439 (Version 3)
Quarter: 2020Q4

REPORT INFORMATION
  Report Type: Spontaneous
  Country: US (occurrence: US)
  Receive Date: 20200103
  Receipt Date: 20201014
  Transmission Date: 20210113
  Serious: Yes (Hospitalization, Other)
  Sender: FDA-Public Use
  Company Number: US-TAKEDA-2020TUS000183

PATIENT

DRUGS (27)
  1. ULORIC [Suspect]
     Active Substance: FEBUXOSTAT
     Indication: GOUT
     Dosage: UNK
     Route: 048
     Dates: start: 2013, end: 2018
  2. ULORIC [Suspect]
     Active Substance: FEBUXOSTAT
     Dosage: UNK MILLIGRAM
     Route: 048
     Dates: start: 20131220, end: 20180725
  3. COMBIVENT [Concomitant]
     Active Substance: ALBUTEROL SULFATE\IPRATROPIUM BROMIDE
  4. ZYRTEC [Concomitant]
     Active Substance: CETIRIZINE HYDROCHLORIDE
  5. SIMVASTATIN. [Concomitant]
     Active Substance: SIMVASTATIN
     Indication: BLOOD CHOLESTEROL INCREASED
     Dosage: 40 MILLIGRAM
  6. NITROGLYCERINE [Concomitant]
     Active Substance: NITROGLYCERIN
  7. ZETIA [Concomitant]
     Active Substance: EZETIMIBE
  8. CARVEDILOL. [Concomitant]
     Active Substance: CARVEDILOL
  9. ASTHALIN                           /00012201/ [Concomitant]
     Indication: ASTHMA
     Dosage: UNK
     Dates: start: 200108
  10. POTASSIUM [Concomitant]
     Active Substance: POTASSIUM
  11. SPIRONOLACTONE. [Concomitant]
     Active Substance: SPIRONOLACTONE
  12. ATENOLOL. [Concomitant]
     Active Substance: ATENOLOL
  13. LIPITOR [Concomitant]
     Active Substance: ATORVASTATIN CALCIUM
  14. SYMBICORT [Concomitant]
     Active Substance: BUDESONIDE\FORMOTEROL FUMARATE DIHYDRATE
  15. NORVASC [Concomitant]
     Active Substance: AMLODIPINE BESYLATE
  16. FLONASE                            /00908302/ [Concomitant]
     Active Substance: MOMETASONE FUROATE
  17. FUROSEMIDE. [Concomitant]
     Active Substance: FUROSEMIDE
  18. ASPIRIN                            /00002701/ [Concomitant]
     Active Substance: ASPIRIN
     Indication: CARDIAC DISORDER
     Dosage: UNK
     Dates: start: 201805
  19. ADVAIR HFA [Concomitant]
     Active Substance: FLUTICASONE PROPIONATE\SALMETEROL XINAFOATE
  20. ALBUTEROL                          /00139501/ [Concomitant]
     Active Substance: ALBUTEROL
  21. TRICOR                             /00090101/ [Concomitant]
     Active Substance: ADENOSINE
  22. ALLOPURINOL. [Concomitant]
     Active Substance: ALLOPURINOL
     Indication: GOUT
     Dosage: UNK
     Dates: start: 201807
  23. MONTELUKAST [Concomitant]
     Active Substance: MONTELUKAST SODIUM
  24. ATROVENT [Concomitant]
     Active Substance: IPRATROPIUM BROMIDE
  25. ULORIC [Suspect]
     Active Substance: FEBUXOSTAT
     Dosage: 40 MILLIGRAM
     Route: 048
     Dates: start: 20131220, end: 20180713
  26. SPIRIVA [Concomitant]
     Active Substance: TIOTROPIUM BROMIDE MONOHYDRATE
  27. HYTRIN [Concomitant]
     Active Substance: TERAZOSIN HYDROCHLORIDE

REACTIONS (1)
  - Cardiac failure congestive [Recovered/Resolved]

NARRATIVE: CASE EVENT DATE: 20180418
